FAERS Safety Report 5157655-6 (Version None)
Quarter: 2006Q4

REPORT INFORMATION
  Report Type: 
  Country: None (occurrence: None)
  Receive Date: 20061127
  Receipt Date: 20050913
  Transmission Date: 20070319
  Serious: Yes (Death, Hospitalization)
  Sender: FDA-Public Use
  Company Number: FR-ROCHE-417568

PATIENT
  Age: 43 Year
  Sex: Male
  Weight: 70 kg

DRUGS (8)
  1. COPEGUS [Suspect]
     Indication: HEPATITIS C
     Route: 048
     Dates: start: 20041112, end: 20050425
  2. VIRAFERONPEG [Suspect]
     Indication: HEPATITIS C
     Route: 058
     Dates: start: 20041112, end: 20050425
  3. ZIAGEN [Suspect]
     Indication: HIV INFECTION
     Route: 048
     Dates: start: 20020203, end: 20050425
  4. VIREAD [Suspect]
     Indication: HIV INFECTION
     Route: 048
     Dates: start: 20020203, end: 20050425
  5. SUSTIVA [Suspect]
     Indication: HIV INFECTION
     Dosage: DOSE REPORTED AS 600.
     Route: 048
     Dates: start: 20020203, end: 20050425
  6. NEURONTIN [Suspect]
     Indication: EPILEPSY
     Route: 048
     Dates: start: 20040311
  7. ANTIRETROVIRAL NOS [Concomitant]
     Dosage: HIV TRITHERAPY FOR YEARS.
  8. IMODIUM [Concomitant]

REACTIONS (5)
  - HAEMOLYTIC ANAEMIA [None]
  - NERVOUS SYSTEM DISORDER [None]
  - PYREXIA [None]
  - THROMBOCYTOPENIA [None]
  - THROMBOTIC THROMBOCYTOPENIC PURPURA [None]
